FAERS Safety Report 8419173-9 (Version None)
Quarter: 2012Q2

REPORT INFORMATION
  Report Type: 
  Country: None (occurrence: None)
  Receive Date: 20120607
  Receipt Date: 20120606
  Transmission Date: 20120825
  Serious: No
  Sender: FDA-Public Use
  Company Number: US-PFIZER INC-2012136535

PATIENT
  Sex: Female
  Weight: 60.771 kg

DRUGS (4)
  1. ZOLOFT [Concomitant]
     Dosage: UNK
  2. CHANTIX [Suspect]
     Indication: SMOKING CESSATION THERAPY
     Dosage: 0.5 MG, 1X/DAY
     Route: 048
     Dates: start: 20120501, end: 20120501
  3. CHANTIX [Suspect]
     Dosage: UNK
     Route: 048
     Dates: start: 20120501
  4. LITHIUM [Concomitant]
     Dosage: UNK

REACTIONS (3)
  - HEADACHE [None]
  - VOMITING [None]
  - NAUSEA [None]
